FAERS Safety Report 21777776 (Version 1)
Quarter: 2022Q4

REPORT INFORMATION
  Report Type: Spontaneous
  Country: JP (occurrence: JP)
  Receive Date: 20221226
  Receipt Date: 20221226
  Transmission Date: 20230113
  Serious: Yes (Other)
  Sender: FDA-Public Use
  Company Number: JP-PFIZER INC-PV202200125747

PATIENT
  Sex: Female

DRUGS (1)
  1. ENBREL [Suspect]
     Active Substance: ETANERCEPT
     Indication: Product used for unknown indication
     Dosage: 2 TIMES/WEEK
     Route: 058

REACTIONS (7)
  - Systemic lupus erythematosus [Unknown]
  - Haemorrhage [Unknown]
  - Oropharyngeal pain [Unknown]
  - Insomnia [Unknown]
  - Anxiety [Unknown]
  - Viral infection [Unknown]
  - Herpes zoster [Unknown]
